FAERS Safety Report 9046308 (Version 1)
Quarter: 2013Q1

REPORT INFORMATION
  Report Type: Spontaneous
  Country: US (occurrence: None)
  Receive Date: 20130128
  Receipt Date: 20130128
  Transmission Date: 20140127
  Serious: Yes (Other)
  Sender: FDA-Public Use
  Company Number: None

PATIENT
  Age: 70 Year
  Sex: Male
  Weight: 126.5 kg

DRUGS (1)
  1. EXENATIDE [Suspect]
     Route: 058
     Dates: start: 20120201, end: 20120917

REACTIONS (2)
  - Nausea [None]
  - Vomiting [None]
